FAERS Safety Report 8910632 (Version 1)
Quarter: 2012Q4

REPORT INFORMATION
  Report Type: Spontaneous
  Country: IN (occurrence: None)
  Receive Date: 20121107
  Receipt Date: 20121107
  Transmission Date: 20130627
  Serious: Yes (Death, Hospitalization, Other)
  Sender: FDA-Public Use
  Company Number: AUR-APL-2012-04722

PATIENT
  Age: 9 Year
  Sex: Female
  Weight: 19 kg

DRUGS (2)
  1. LAMIVUDINE AND NEVIRAPINE AND STAVUDINE [Suspect]
     Indication: ANTIRETROVIRAL THERAPY
  2. CO-TRIMOXAZOLE [Suspect]
     Indication: DRUG USE FOR UNKNOWN INDICATION

REACTIONS (14)
  - Abdominal pain [None]
  - Vomiting [None]
  - Oropharyngeal pain [None]
  - Paraesthesia [None]
  - Hypoaesthesia [None]
  - Asthenia [None]
  - Peripheral coldness [None]
  - Anaemia [None]
  - Tetany [None]
  - Hypocalcaemia [None]
  - Blood sodium decreased [None]
  - Blood alkaline phosphatase increased [None]
  - Pancreatitis necrotising [None]
  - Respiratory distress [None]
